FAERS Safety Report 5614158-X (Version None)
Quarter: 2008Q1

REPORT INFORMATION
  Report Type: 
  Country: None (occurrence: None)
  Receive Date: 20080130
  Receipt Date: 20080122
  Transmission Date: 20080703
  Serious: Yes (Other)
  Sender: FDA-Public Use
  Company Number: SPV1-2007-04836

PATIENT
  Age: 12 Year
  Sex: Male
  Weight: 30 kg

DRUGS (3)
  1. ELAPRASE [Suspect]
     Indication: MUCOPOLYSACCHARIDOSIS II
     Dosage: 18 MG, 1X/WEEK, IV DRIP
     Dates: start: 20070202
  2. ELAPRASE [Suspect]
  3. MOTILIUM [Concomitant]

REACTIONS (3)
  - DERMATITIS BULLOUS [None]
  - FLUSHING [None]
  - NAUSEA [None]
